FAERS Safety Report 15636243 (Version 3)
Quarter: 2019Q1

REPORT INFORMATION
  Report Type: Report from Study
  Country: None (occurrence: BE)
  Receive Date: 20181120
  Receipt Date: 20190215
  Transmission Date: 20190417
  Serious: Yes (Hospitalization)
  Sender: FDA-Public Use
  Company Number: BE-ABBVIE-18S-013-2559365-00

PATIENT
  Sex: Female

DRUGS (7)
  1. DUODOPA [Suspect]
     Active Substance: CARBIDOPA\LEVODOPA
     Dosage: MD= 8ML CD= 3.4ML/HR DURING 16HRS ED= 4.0ML ND= 3.2ML/HR DURING 8HRS
     Route: 050
     Dates: start: 20190127, end: 2019
  2. EMCONCOR MITIS [Concomitant]
     Indication: PRODUCT USED FOR UNKNOWN INDICATION
  3. STAURODORM [Concomitant]
     Indication: PRODUCT USED FOR UNKNOWN INDICATION
  4. DUODOPA [Suspect]
     Active Substance: CARBIDOPA\LEVODOPA
     Indication: PARKINSON^S DISEASE
     Dosage: MD=4ML, CD=2.3ML/HR DURING 16HRS, ED=1.5ML
     Route: 050
     Dates: start: 20170515, end: 20170517
  5. PANTOMED [Concomitant]
     Indication: PRODUCT USED FOR UNKNOWN INDICATION
  6. DUODOPA [Suspect]
     Active Substance: CARBIDOPA\LEVODOPA
     Dosage: MD=8ML, CD=3.4ML/HR DURING 16HRS, ED=4ML, ND=3.2ML/HR DURING 8HRS
     Route: 050
     Dates: start: 20180810, end: 20190127
  7. DUODOPA [Suspect]
     Active Substance: CARBIDOPA\LEVODOPA
     Dosage: DOSES CONTINUOUSLY MONITORED AND ADAPTED
     Route: 050
     Dates: start: 20170517, end: 20180810

REACTIONS (6)
  - Gastrointestinal disorder [Unknown]
  - Dizziness [Unknown]
  - General physical health deterioration [Not Recovered/Not Resolved]
  - Bedridden [Unknown]
  - Off label use [Unknown]
  - Device dislocation [Unknown]
